FAERS Safety Report 9056568 (Version 1)
Quarter: 2013Q1

REPORT INFORMATION
  Report Type: Spontaneous
  Country: US (occurrence: US)
  Receive Date: 20130204
  Receipt Date: 20130204
  Transmission Date: 20140127
  Serious: No
  Sender: FDA-Public Use
  Company Number: US-TEVA-382573USA

PATIENT
  Age: 59 None
  Sex: Female

DRUGS (10)
  1. NUVIGIL [Suspect]
     Indication: SOMNOLENCE
     Dosage: 250 MILLIGRAM DAILY;
     Route: 048
     Dates: start: 20121225, end: 20121228
  2. METHADONE [Concomitant]
     Dosage: 40 MILLIGRAM DAILY;
     Route: 048
  3. CLONAZEPAM [Concomitant]
     Dosage: 4 MILLIGRAM DAILY;
     Route: 048
  4. ZOLOFT [Concomitant]
     Indication: DEPRESSION
     Dosage: 100 MILLIGRAM DAILY;
     Route: 048
  5. SOMA [Concomitant]
     Indication: MUSCLE SPASMS
     Dosage: 1050 MILLIGRAM DAILY;
     Route: 048
  6. AMBIEN [Concomitant]
     Indication: INSOMNIA
     Dosage: HS
     Route: 048
  7. ANTIVERT [Concomitant]
     Indication: SOMNOLENCE
     Dosage: PRN
     Route: 048
  8. FIORICET [Concomitant]
     Indication: MIGRAINE
     Dosage: PRN
     Route: 048
  9. DEPAKOATE [Concomitant]
     Indication: MIGRAINE
     Dosage: 500 MILLIGRAM DAILY;
     Route: 048
  10. ZOMIG [Concomitant]
     Indication: MIGRAINE
     Dosage: PRN
     Route: 048

REACTIONS (4)
  - Nausea [Unknown]
  - Headache [Unknown]
  - Off label use [Recovered/Resolved]
  - Drug ineffective [Not Recovered/Not Resolved]
